FAERS Safety Report 8376731-8 (Version None)
Quarter: 2012Q2

REPORT INFORMATION
  Report Type: 
  Country: None (occurrence: None)
  Receive Date: 20120518
  Receipt Date: 20120507
  Transmission Date: 20120825
  Serious: Yes (Death, Other)
  Sender: FDA-Public Use
  Company Number: 2012P1025046

PATIENT
  Age: 88 Year
  Sex: Female

DRUGS (1)
  1. HEPARIN [Suspect]
     Indication: CEREBRAL INFARCTION

REACTIONS (1)
  - HEPARIN-INDUCED THROMBOCYTOPENIA [None]
